FAERS Safety Report 24250530 (Version 2)
Quarter: 2025Q2

REPORT INFORMATION
  Report Type: Spontaneous
  Country: US (occurrence: US)
  Receive Date: 20240826
  Receipt Date: 20250627
  Transmission Date: 20250716
  Serious: No
  Sender: GALDERMA
  Company Number: US-GALDERMA-US2024011633

PATIENT

DRUGS (10)
  1. PROACTIV MD ADAPALENE ACNE TREATMENT [Suspect]
     Active Substance: ADAPALENE
     Indication: Acne
     Route: 061
     Dates: start: 202404, end: 2024
  2. PROACTIV MD ADAPALENE ACNE TREATMENT [Suspect]
     Active Substance: ADAPALENE
     Indication: Skin hyperpigmentation
     Route: 061
     Dates: start: 2024, end: 202408
  3. COSMETICS [Concomitant]
     Active Substance: COSMETICS
     Indication: Acne
     Route: 061
  4. COSMETICS [Concomitant]
     Active Substance: COSMETICS
     Indication: Skin hyperpigmentation
  5. COSMETICS [Concomitant]
     Active Substance: COSMETICS
     Indication: Acne
     Route: 061
  6. COSMETICS [Concomitant]
     Active Substance: COSMETICS
     Indication: Skin hyperpigmentation
  7. COSMETICS [Concomitant]
     Active Substance: COSMETICS
     Indication: Acne
     Route: 061
  8. COSMETICS [Concomitant]
     Active Substance: COSMETICS
     Indication: Skin hyperpigmentation
  9. COSMETICS [Concomitant]
     Active Substance: COSMETICS
     Indication: Acne
     Route: 061
  10. COSMETICS [Concomitant]
     Active Substance: COSMETICS
     Indication: Skin hyperpigmentation

REACTIONS (12)
  - Rash [Not Recovered/Not Resolved]
  - Skin irritation [Not Recovered/Not Resolved]
  - Skin exfoliation [Not Recovered/Not Resolved]
  - Swelling face [Not Recovered/Not Resolved]
  - Sensitive skin [Not Recovered/Not Resolved]
  - Rash macular [Not Recovered/Not Resolved]
  - Pain of skin [Not Recovered/Not Resolved]
  - Scar [Not Recovered/Not Resolved]
  - Skin burning sensation [Not Recovered/Not Resolved]
  - Sunburn [Not Recovered/Not Resolved]
  - Acne [Not Recovered/Not Resolved]
  - Drug ineffective [Unknown]

NARRATIVE: CASE EVENT DATE: 20240701
